FAERS Safety Report 9138044 (Version 1)
Quarter: 2013Q1

REPORT INFORMATION
  Report Type: Spontaneous
  Country: DE (occurrence: DE)
  Receive Date: 20130304
  Receipt Date: 20130304
  Transmission Date: 20140127
  Serious: Yes (Hospitalization)
  Sender: FDA-Public Use
  Company Number: DE-ELI_LILLY_AND_COMPANY-DE201211007376

PATIENT
  Age: 74 Year
  Sex: Female

DRUGS (3)
  1. FORSTEO [Suspect]
     Indication: OSTEOPOROSIS
     Dosage: UNK, QD
     Route: 058
     Dates: start: 20120804
  2. CORTISONE [Concomitant]
  3. CALCIUM W/VITAMIN D                /00188401/ [Concomitant]

REACTIONS (2)
  - Local swelling [Not Recovered/Not Resolved]
  - Pneumonia [Not Recovered/Not Resolved]
